FAERS Safety Report 14325577 (Version 1)
Quarter: 2017Q4

REPORT INFORMATION
  Report Type: Spontaneous
  Country: IT (occurrence: IT)
  Receive Date: 20171226
  Receipt Date: 20171226
  Transmission Date: 20180321
  Serious: Yes (Hospitalization)
  Sender: FDA-Public Use
  Company Number: PHHY2017IT192889

PATIENT
  Age: 82 Year
  Sex: Female

DRUGS (9)
  1. AMPICILLIN [Suspect]
     Active Substance: AMPICILLIN
     Indication: PNEUMONIA
     Dosage: 2 G, UNK
     Route: 065
  2. HUMAN SERUM ALBUMIN [Concomitant]
     Active Substance: ALBUMIN HUMAN
     Indication: PROTEIN DEFICIENCY
     Dosage: 50 ML, UNK
     Route: 042
  3. TICLOPIDINE HYDROCHLORIDE. [Suspect]
     Active Substance: TICLOPIDINE HYDROCHLORIDE
     Indication: PERIPHERAL ARTERIAL OCCLUSIVE DISEASE
     Dosage: UNK
     Route: 065
  4. INDOMETACIN [Suspect]
     Active Substance: INDOMETHACIN
     Indication: ARTHRALGIA
     Dosage: UNK
     Route: 065
  5. HYDROCHLOROTHIAZIDE. [Suspect]
     Active Substance: HYDROCHLOROTHIAZIDE
     Indication: HYPERTENSION
     Dosage: UNK
     Route: 065
  6. BUFLOMEDIL [Suspect]
     Active Substance: BUFLOMEDIL
     Indication: PERIPHERAL ARTERIAL OCCLUSIVE DISEASE
     Dosage: UNK
     Route: 065
  7. NORFLOXACIN [Concomitant]
     Active Substance: NORFLOXACIN
     Indication: ESCHERICHIA URINARY TRACT INFECTION
     Dosage: 400 MG, UNK
     Route: 065
  8. FUROSEMIDE. [Suspect]
     Active Substance: FUROSEMIDE
     Indication: PRODUCT USED FOR UNKNOWN INDICATION
     Dosage: UNK
     Route: 042
  9. SPIRONOLACTONE. [Suspect]
     Active Substance: SPIRONOLACTONE
     Indication: DIURETIC THERAPY
     Dosage: 100 MG, UNK
     Route: 048

REACTIONS (6)
  - Drug hypersensitivity [Unknown]
  - Oliguria [Unknown]
  - Hypokalaemia [Unknown]
  - Escherichia urinary tract infection [Unknown]
  - Oedema peripheral [Unknown]
  - Tubulointerstitial nephritis [Unknown]
